FAERS Safety Report 5463665-1 (Version None)
Quarter: 2007Q3

REPORT INFORMATION
  Report Type: 
  Country: None (occurrence: None)
  Receive Date: 20070919
  Receipt Date: 20070906
  Transmission Date: 20080115
  Serious: Yes (Hospitalization)
  Sender: FDA-Public Use
  Company Number: 237549K07USA

PATIENT
  Age: 42 Year
  Sex: Female

DRUGS (2)
  1. REBIF [Suspect]
     Indication: MULTIPLE SCLEROSIS
     Dosage: 44 MCG, 3 IN 1 WEEKS, SUBCUTANEOUS
     Route: 058
     Dates: start: 20060324
  2. WELLBUTRIN [Concomitant]

REACTIONS (6)
  - FATIGUE [None]
  - HEADACHE [None]
  - HYPERHIDROSIS [None]
  - PARATHYROID GLAND ENLARGEMENT [None]
  - POST PROCEDURAL COMPLICATION [None]
  - THYROID NEOPLASM [None]
